FAERS Safety Report 16971671 (Version 1)
Quarter: 2019Q4

REPORT INFORMATION
  Report Type: Spontaneous
  Country: US (occurrence: US)
  Receive Date: 20191029
  Receipt Date: 20191029
  Transmission Date: 20200122
  Serious: No
  Sender: FDA-Public Use
  Company Number: US-PERRIGO-19US000092

PATIENT
  Age: 41 Year
  Sex: Female
  Weight: 49.89 kg

DRUGS (2)
  1. MESALAZINE [Suspect]
     Active Substance: MESALAMINE
     Indication: COLITIS ULCERATIVE
     Dosage: 60 ML, QD AT NIGHT
     Route: 054
     Dates: start: 20181229, end: 20181231
  2. LIALDA [Concomitant]
     Active Substance: MESALAMINE
     Indication: COLITIS ULCERATIVE
     Dosage: UNK
     Route: 065
     Dates: start: 2010

REACTIONS (2)
  - Abdominal discomfort [Recovering/Resolving]
  - Hypersensitivity [Recovering/Resolving]

NARRATIVE: CASE EVENT DATE: 20181231
